FAERS Safety Report 6773624-4 (Version None)
Quarter: 2010Q2

REPORT INFORMATION
  Report Type: 
  Country: None (occurrence: None)
  Receive Date: 20100614
  Receipt Date: 20100609
  Transmission Date: 20101027
  Serious: Yes (Death)
  Sender: FDA-Public Use
  Company Number: 610176

PATIENT
  Age: 66 Year
  Sex: Male

DRUGS (2)
  1. CYTARABINE [Suspect]
     Indication: LEUKAEMIA
     Dosage: 20 MG MILLIGRAM(S), 2 DAY, SUBCUTANEOUS
     Route: 058
     Dates: start: 20100507, end: 20100515
  2. MYLOTARG [Suspect]
     Indication: LEUKAEMIA
     Dosage: 5 MG MILLIGRAM(S), INTRAVENOUS
     Route: 042
     Dates: start: 20100507, end: 20100516

REACTIONS (1)
  - CARDIAC ARREST [None]
